FAERS Safety Report 7699505-X (Version None)
Quarter: 2011Q3

REPORT INFORMATION
  Report Type: 
  Country: None (occurrence: None)
  Receive Date: 20110820
  Receipt Date: 20110516
  Transmission Date: 20111222
  Serious: No
  Sender: FDA-Public Use
  Company Number: US-ALLERGAN-1106666US

PATIENT
  Sex: Female

DRUGS (1)
  1. SANCTURA XR [Suspect]
     Indication: HYPERTONIC BLADDER
     Dosage: UNK
     Route: 048
     Dates: start: 20110514, end: 20110514

REACTIONS (3)
  - DIARRHOEA [None]
  - VOMITING [None]
  - OROPHARYNGEAL PAIN [None]
